FAERS Safety Report 8001631-2 (Version None)
Quarter: 2011Q4

REPORT INFORMATION
  Report Type: 
  Country: None (occurrence: None)
  Receive Date: 20111222
  Receipt Date: 20100727
  Transmission Date: 20120403
  Serious: No
  Sender: FDA-Public Use
  Company Number: US-GLAXOSMITHKLINE-A0872503A

PATIENT
  Age: 54 Year
  Sex: Female

DRUGS (1)
  1. NICOTINE POLACRILEX [Suspect]
     Indication: EX-TOBACCO USER
     Dates: start: 20100724, end: 20100725

REACTIONS (5)
  - DISSOCIATION [None]
  - MALAISE [None]
  - CHEST PAIN [None]
  - DYSPEPSIA [None]
  - FEELING ABNORMAL [None]
